FAERS Safety Report 15336179 (Version 1)
Quarter: 2018Q4

REPORT INFORMATION
  Report Type: Spontaneous
  Country: CA (occurrence: CA)
  Receive Date: 20180830
  Receipt Date: 20180830
  Transmission Date: 20190204
  Serious: Yes (Hospitalization)
  Sender: FDA-Public Use
  Company Number: CA-TEVA-2018-CA-948052

PATIENT
  Age: 35 Year
  Sex: Female
  Weight: 131.66 kg

DRUGS (16)
  1. FOLIC ACID. [Concomitant]
     Active Substance: FOLIC ACID
  2. EZETROL [Concomitant]
     Active Substance: EZETIMIBE
  3. NOVORAPID [Concomitant]
     Active Substance: INSULIN ASPART
     Route: 058
  4. APO-VALPROIC [Suspect]
     Active Substance: VALPROIC ACID
     Indication: EPILEPSY
     Route: 048
  5. ASA [Concomitant]
     Active Substance: ASPIRIN
  6. KEPPRA [Concomitant]
     Active Substance: LEVETIRACETAM
  7. ALLOPURINOL. [Concomitant]
     Active Substance: ALLOPURINOL
  8. HYDROCORTISONE. [Concomitant]
     Active Substance: HYDROCORTISONE
     Route: 030
  9. HUMULIN 70/30 [Concomitant]
     Active Substance: INSULIN HUMAN
  10. L-THYROXINE [Concomitant]
     Active Substance: LEVOTHYROXINE
  11. LEVEMIR [Concomitant]
     Active Substance: INSULIN DETEMIR
     Route: 058
  12. ALTACE [Concomitant]
     Active Substance: RAMIPRIL
  13. DEPAKENE [Concomitant]
     Active Substance: VALPROIC ACID
  14. FUROSEMIDE. [Concomitant]
     Active Substance: FUROSEMIDE
  15. NOVO-VALPROIC [Suspect]
     Active Substance: VALPROIC ACID
  16. DDAVP [Concomitant]
     Active Substance: DESMOPRESSIN ACETATE

REACTIONS (2)
  - Product substitution issue [Recovered/Resolved]
  - Drug ineffective [Recovered/Resolved]
